FAERS Safety Report 6362359-8 (Version None)
Quarter: 2009Q3

REPORT INFORMATION
  Report Type: 
  Country: None (occurrence: None)
  Receive Date: 20090918
  Receipt Date: 20090623
  Transmission Date: 20100115
  Serious: No
  Sender: FDA-Public Use
  Company Number: US-ABBOTT-08P-163-0477335-00

PATIENT
  Sex: Female
  Weight: 55.842 kg

DRUGS (5)
  1. HUMIRA [Suspect]
     Indication: CROHN'S DISEASE
     Route: 058
     Dates: start: 20070301, end: 20080918
  2. HUMIRA [Suspect]
     Route: 058
     Dates: start: 20090617
  3. ENTOCORT EC [Concomitant]
     Indication: CROHN'S DISEASE
     Route: 048
     Dates: start: 20080916
  4. VITAMIN TAB [Concomitant]
     Indication: VITAMIN SUPPLEMENTATION
     Route: 048
  5. CIMZIA [Concomitant]
     Indication: CROHN'S DISEASE
     Dates: start: 20080901

REACTIONS (6)
  - DIARRHOEA [None]
  - DRUG INEFFECTIVE [None]
  - ERYTHEMA NODOSUM [None]
  - HAEMORRHAGE [None]
  - ILL-DEFINED DISORDER [None]
  - WEIGHT DECREASED [None]
